APPROVED DRUG PRODUCT: INDAPAMIDE
Active Ingredient: INDAPAMIDE
Strength: 2.5MG
Dosage Form/Route: TABLET;ORAL
Application: A074498 | Product #001
Applicant: ANI PHARMACEUTICALS INC
Approved: Oct 31, 1996 | RLD: No | RS: No | Type: DISCN